FAERS Safety Report 20814888 (Version 1)
Quarter: 2022Q2

REPORT INFORMATION
  Report Type: Spontaneous
  Country: US (occurrence: US)
  Receive Date: 20220511
  Receipt Date: 20220511
  Transmission Date: 20220721
  Serious: No
  Sender: FDA-Public Use
  Company Number: US-PFIZER INC-202101755971

PATIENT
  Age: 63 Year
  Sex: Female
  Weight: 49.9 kg

DRUGS (1)
  1. HYDROXYZINE PAMOATE [Suspect]
     Active Substance: HYDROXYZINE PAMOATE

REACTIONS (2)
  - Drug hypersensitivity [Unknown]
  - Anxiety [Unknown]
